FAERS Safety Report 7647892-0 (Version None)
Quarter: 2011Q3

REPORT INFORMATION
  Report Type: 
  Country: None (occurrence: None)
  Receive Date: 20110801
  Receipt Date: 20110630
  Transmission Date: 20111222
  Serious: No
  Sender: FDA-Public Use
  Company Number: US-ABBOTT-11P-163-0836189-00

PATIENT
  Sex: Female
  Weight: 60.382 kg

DRUGS (1)
  1. CREON [Suspect]
     Indication: ABDOMINAL PAIN UPPER
     Route: 048
     Dates: start: 20110628

REACTIONS (2)
  - DRUG INEFFECTIVE [None]
  - ABDOMINAL PAIN UPPER [None]
